FAERS Safety Report 12988825 (Version 5)
Quarter: 2019Q4

REPORT INFORMATION
  Report Type: Report from Study
  Country: DE (occurrence: DE)
  Receive Date: 20161130
  Receipt Date: 20191001
  Transmission Date: 20200122
  Serious: Yes (Death, Hospitalization)
  Sender: FDA-Public Use
  Company Number: DE-ROCHE-1861256

PATIENT
  Sex: Male

DRUGS (6)
  1. VINCRISTINE [Suspect]
     Active Substance: VINCRISTINE
     Indication: B-CELL LYMPHOMA
     Route: 042
     Dates: start: 20161006
  2. LENOGRASTIM [Suspect]
     Active Substance: LENOGRASTIM
     Indication: B-CELL LYMPHOMA
     Dosage: 34MICROG, DAY 4-13
     Route: 058
     Dates: start: 20161004
  3. RITUXIMAB. [Suspect]
     Active Substance: RITUXIMAB
     Indication: B-CELL LYMPHOMA
     Dosage: DATE LAST RITUXIMAB GIVEN PRIOR TO SERIOUS ADVERSE EVENT: 15/NOV/2016
     Route: 042
     Dates: start: 20160928
  4. DOXORUBICINE [DOXORUBICIN] [Suspect]
     Active Substance: DOXORUBICIN
     Indication: B-CELL LYMPHOMA
     Route: 042
     Dates: start: 20161004
  5. CYCLOPHOSPHAMIDE. [Suspect]
     Active Substance: CYCLOPHOSPHAMIDE
     Indication: B-CELL LYMPHOMA
     Dosage: DATE LAST CYCLE OF CHOP STARTED PRIOR TO SERIOUS ADVERSE EVENT (SAE): 15/NOV/2016
     Route: 042
     Dates: start: 20161004
  6. PREDNISOLONE. [Suspect]
     Active Substance: PREDNISOLONE
     Indication: B-CELL LYMPHOMA
     Route: 048
     Dates: start: 20160923

REACTIONS (2)
  - General physical health deterioration [Not Recovered/Not Resolved]
  - Pneumocystis jirovecii pneumonia [Fatal]

NARRATIVE: CASE EVENT DATE: 20161129
